FAERS Safety Report 16410516 (Version 4)
Quarter: 2019Q3

REPORT INFORMATION
  Report Type: Spontaneous
  Country: US (occurrence: US)
  Receive Date: 20190610
  Receipt Date: 20190903
  Transmission Date: 20191004
  Serious: No
  Sender: FDA-Public Use
  Company Number: US-PFIZER INC-2019245619

PATIENT
  Age: 70 Year
  Sex: Female

DRUGS (4)
  1. AMLODIPIN MESILATE [Concomitant]
     Dosage: UNK
  2. ASPIRIN [ACETYLSALICYLIC ACID] [Concomitant]
     Active Substance: ASPIRIN
     Dosage: 81 MG, UNK
  3. LYRICA [Suspect]
     Active Substance: PREGABALIN
     Indication: BURNING SENSATION
     Dosage: UNK
     Dates: start: 2015, end: 2015
  4. AMLODIPINE BESYLATE AND BENAZEPRIL HYDROCHLORIDE [Concomitant]
     Active Substance: AMLODIPINE BESYLATE\BENAZEPRIL HYDROCHLORIDE
     Indication: BLOOD PRESSURE MEASUREMENT
     Dosage: 20 MG, DAILY

REACTIONS (8)
  - Depression [Not Recovered/Not Resolved]
  - Anxiety [Not Recovered/Not Resolved]
  - Burning sensation [Unknown]
  - Pruritus [Unknown]
  - Pain [Unknown]
  - Toothache [Unknown]
  - Muscle twitching [Unknown]
  - Pain in jaw [Unknown]

NARRATIVE: CASE EVENT DATE: 2015
